FAERS Safety Report 7097734-X (Version None)
Quarter: 2010Q4

REPORT INFORMATION
  Report Type: 
  Country: None (occurrence: None)
  Receive Date: 20101104
  Receipt Date: 20101103
  Transmission Date: 20110411
  Serious: Yes (Hospitalization)
  Sender: FDA-Public Use
  Company Number: LIT-10-0056-W

PATIENT
  Age: 28 Year
  Sex: Male

DRUGS (4)
  1. PHENYTOIN [Suspect]
     Indication: GRAND MAL CONVULSION
     Dosage: 300MG, DAILY, 047
  2. PHENYTOIN [Suspect]
     Indication: PARTIAL SEIZURES
     Dosage: 300MG, DAILY, 047
  3. LEVETIRACETAM [Concomitant]
  4. VALPROIC ACID [Concomitant]

REACTIONS (4)
  - BLOOD PH DECREASED [None]
  - OVERDOSE [None]
  - PNEUMONIA [None]
  - STATUS EPILEPTICUS [None]
